FAERS Safety Report 15150264 (Version 1)
Quarter: 2018Q3

REPORT INFORMATION
  Report Type: Spontaneous
  Country: NL (occurrence: NL)
  Receive Date: 20180716
  Receipt Date: 20180716
  Transmission Date: 20181010
  Serious: Yes (Hospitalization)
  Sender: FDA-Public Use
  Company Number: NL-US WORLDMEDS, LLC-STA_00017413

PATIENT
  Sex: Female

DRUGS (23)
  1. ENALAPRIL MALEAAT [Concomitant]
  2. ROPINIROL [Concomitant]
     Active Substance: ROPINIROLE
  3. LEVODOPA/BENSERAZIDE [Concomitant]
     Active Substance: BENSERAZIDE\LEVODOPA
  4. PROTAGENS [Concomitant]
  5. REQUIP [Concomitant]
     Active Substance: ROPINIROLE HYDROCHLORIDE
  6. PARACETAMOL [Concomitant]
     Active Substance: ACETAMINOPHEN
  7. TRIMETHOPRIM. [Concomitant]
     Active Substance: TRIMETHOPRIM
  8. METOPROLOLSUCCINAAT [Concomitant]
     Active Substance: METOPROLOL SUCCINATE
  9. ACENOCOUMAROL [Concomitant]
     Active Substance: ACENOCOUMAROL
  10. DOMPERIDON [Concomitant]
     Active Substance: DOMPERIDONE
  11. MADOPAR [Concomitant]
     Active Substance: BENSERAZIDE HYDROCHLORIDE\LEVODOPA
  12. APOMORPHINE HYDROCHLORIDE [Suspect]
     Active Substance: APOMORPHINE HYDROCHLORIDE
     Indication: PARKINSON^S DISEASE
     Route: 058
     Dates: start: 20120522, end: 20120619
  13. AMLODIPINE [Concomitant]
     Active Substance: AMLODIPINE BESYLATE
  14. APOMORPHINE HYDROCHLORIDE [Suspect]
     Active Substance: APOMORPHINE HYDROCHLORIDE
     Route: 058
     Dates: start: 20140826
  15. METOPROLOLSUCCINAAT [Concomitant]
     Active Substance: METOPROLOL SUCCINATE
  16. AMLODIPINE [Concomitant]
     Active Substance: AMLODIPINE BESYLATE
  17. FLUTICASONPROPIONAAT [Concomitant]
  18. ISORDIL [Concomitant]
     Active Substance: ISOSORBIDE DINITRATE
  19. ROPINIROL [Concomitant]
     Active Substance: ROPINIROLE
  20. ZOLPIDEM [Concomitant]
     Active Substance: ZOLPIDEM\ZOLPIDEM TARTRATE
  21. VIDISIC CARBOGEL [Concomitant]
  22. ATROVENT [Concomitant]
     Active Substance: IPRATROPIUM BROMIDE
  23. AMLODIPINE [Concomitant]
     Active Substance: AMLODIPINE BESYLATE

REACTIONS (4)
  - On and off phenomenon [Unknown]
  - Syncope [Unknown]
  - Blood pressure decreased [Unknown]
  - Cystitis noninfective [Unknown]
